FAERS Safety Report 9778084 (Version 1)
Quarter: 2013Q4

REPORT INFORMATION
  Report Type: Report from Study
  Country: ES (occurrence: ES)
  Receive Date: 20131223
  Receipt Date: 20131223
  Transmission Date: 20140711
  Serious: Yes (Death, Hospitalization, Other)
  Sender: FDA-Public Use
  Company Number: ES-ROCHE-1317338

PATIENT
  Sex: 0

DRUGS (7)
  1. PEG-INTERFERON ALFA 2A [Suspect]
     Indication: HEPATITIS C
     Route: 065
  2. RIBAVIRIN [Suspect]
     Indication: HEPATITIS C
     Route: 065
  3. PEGINTERFERON ALFA-2B [Suspect]
     Indication: HEPATITIS C
     Route: 065
  4. TELAPREVIR [Suspect]
     Indication: HEPATITIS C
     Route: 065
  5. RALTEGRAVIR [Concomitant]
  6. ATAZANAVIR [Concomitant]
  7. ETRAVIRINE [Concomitant]

REACTIONS (7)
  - Death [Fatal]
  - Bacterial infection [Unknown]
  - Neutropenia [Unknown]
  - Platelet disorder [Unknown]
  - Haemoglobin abnormal [Unknown]
  - Hepatic failure [Unknown]
  - Treatment failure [Unknown]
